FAERS Safety Report 14208557 (Version 1)
Quarter: 2017Q4

REPORT INFORMATION
  Report Type: Spontaneous
  Country: US (occurrence: None)
  Receive Date: 20171120
  Receipt Date: 20171120
  Transmission Date: 20180321
  Serious: No
  Sender: FDA-Public Use
  Company Number: None

PATIENT
  Age: 39 Year
  Sex: Male

DRUGS (1)
  1. MYCOPHENOLIC ACID. [Suspect]
     Active Substance: MYCOPHENOLIC ACID
     Indication: RENAL TRANSPLANT
     Route: 048
     Dates: start: 201710

REACTIONS (5)
  - Psoriasis [None]
  - Skin exfoliation [None]
  - Eczema [None]
  - Dry skin [None]
  - Product substitution issue [None]

NARRATIVE: CASE EVENT DATE: 201710
